FAERS Safety Report 20415020 (Version 4)
Quarter: 2022Q2

REPORT INFORMATION
  Report Type: Spontaneous
  Country: GB (occurrence: GB)
  Receive Date: 20220202
  Receipt Date: 20220624
  Transmission Date: 20220721
  Serious: Yes (Hospitalization, Other)
  Sender: FDA-Public Use
  Company Number: GB-ROCHE-3001491

PATIENT
  Age: 43 Year
  Sex: Female

DRUGS (64)
  1. TRASTUZUMAB [Suspect]
     Active Substance: TRASTUZUMAB
     Indication: Breast cancer metastatic
     Dosage: 8 MILLIGRAM, Q3WK
     Route: 042
     Dates: start: 20171108
  2. TRASTUZUMAB [Suspect]
     Active Substance: TRASTUZUMAB
     Dosage: 882 MILLIGRAM, Q3WK
     Route: 042
     Dates: start: 20171108, end: 20171129
  3. TRASTUZUMAB [Suspect]
     Active Substance: TRASTUZUMAB
     Dosage: 651 MILLIGRAM, Q3WK
     Route: 042
     Dates: start: 20171129, end: 20210903
  4. DOCETAXEL [Suspect]
     Active Substance: DOCETAXEL
     Indication: Breast cancer metastatic
     Dosage: 148 MILLIGRAM, Q3WK
     Route: 042
     Dates: start: 20171108, end: 20180131
  5. PERTUZUMAB [Suspect]
     Active Substance: PERTUZUMAB
     Indication: Breast cancer metastatic
     Dosage: 840 MILLIGRAM, Q3WK
     Route: 042
     Dates: start: 20171108, end: 20171129
  6. PERTUZUMAB [Suspect]
     Active Substance: PERTUZUMAB
     Dosage: 420 MILLIGRAM, Q3WK
     Route: 042
     Dates: start: 20171129
  7. PERTUZUMAB [Suspect]
     Active Substance: PERTUZUMAB
     Dosage: 840 MILLIGRAM, Q3WK
     Route: 042
     Dates: start: 20181120
  8. CALCIUM CARBONATE [Concomitant]
     Active Substance: CALCIUM CARBONATE
     Indication: Product used for unknown indication
     Dosage: 1 DOSAGE FORM, QD (1.5G + 400 UNITS)
     Route: 048
  9. CALCIUM CARBONATE [Concomitant]
     Active Substance: CALCIUM CARBONATE
     Dosage: 1,5G + 400 UNITS
     Route: 048
  10. CALCIUM CARBONATE [Concomitant]
     Active Substance: CALCIUM CARBONATE
     Dosage: 1,5G + 400 UNITS
     Route: 048
  11. BECLOMETHASONE DIPROPIONATE [Concomitant]
     Active Substance: BECLOMETHASONE DIPROPIONATE
     Indication: Product used for unknown indication
     Dosage: 2 PUFF, QD
     Route: 065
  12. BECLOMETHASONE DIPROPIONATE [Concomitant]
     Active Substance: BECLOMETHASONE DIPROPIONATE
     Dosage: 2 PUFF
     Route: 065
  13. BECLOMETHASONE DIPROPIONATE [Concomitant]
     Active Substance: BECLOMETHASONE DIPROPIONATE
     Dosage: 2 PUFF
     Route: 065
  14. CLONAZEPAM [Concomitant]
     Active Substance: CLONAZEPAM
     Indication: Product used for unknown indication
     Dosage: 250 MILLIGRAM, QD
     Route: 048
     Dates: start: 202006
  15. ERYTHROMYCIN [Concomitant]
     Active Substance: ERYTHROMYCIN
     Indication: Vascular device infection
     Dosage: 500 MILLIGRAM, QID
     Route: 048
     Dates: start: 2020, end: 202007
  16. LACTULOSE [Concomitant]
     Active Substance: LACTULOSE
     Indication: Product used for unknown indication
     Dosage: 10 MILLILITER, BID
     Route: 048
  17. LACTULOSE [Concomitant]
     Active Substance: LACTULOSE
     Route: 048
  18. LACTULOSE [Concomitant]
     Active Substance: LACTULOSE
  19. LINEZOLID [Concomitant]
     Active Substance: LINEZOLID
     Indication: Vascular device infection
     Dosage: 600 MILLIGRAM, BID
     Route: 048
     Dates: start: 20191125, end: 20191130
  20. LINEZOLID [Concomitant]
     Active Substance: LINEZOLID
     Indication: Vascular device infection
  21. METFORMIN [Concomitant]
     Active Substance: METFORMIN HYDROCHLORIDE
     Indication: Product used for unknown indication
     Dosage: 1000 MILLIGRAM, QD
     Route: 065
  22. METFORMIN [Concomitant]
     Active Substance: METFORMIN HYDROCHLORIDE
     Route: 065
  23. METFORMIN [Concomitant]
     Active Substance: METFORMIN HYDROCHLORIDE
     Route: 065
  24. MIRTAZAPINE [Concomitant]
     Active Substance: MIRTAZAPINE
     Indication: Product used for unknown indication
     Dosage: 45 MILLIGRAM, QD
     Route: 048
  25. MIRTAZAPINE [Concomitant]
     Active Substance: MIRTAZAPINE
     Route: 048
  26. MIRTAZAPINE [Concomitant]
     Active Substance: MIRTAZAPINE
     Route: 048
  27. MORPHINE [Concomitant]
     Active Substance: MORPHINE
     Indication: Diarrhoea
     Dosage: 5 MILLIGRAM
     Route: 042
     Dates: start: 20181002, end: 20181002
  28. MORPHINE [Concomitant]
     Active Substance: MORPHINE
     Indication: Vomiting
     Dosage: UNK, UNK
  29. MORPHINE [Concomitant]
     Active Substance: MORPHINE
  30. MORPHINE [Concomitant]
     Active Substance: MORPHINE
  31. MORPHINE [Concomitant]
     Active Substance: MORPHINE
  32. MORPHINE [Concomitant]
     Active Substance: MORPHINE
  33. NITROFURANTOIN [Concomitant]
     Active Substance: NITROFURANTOIN
     Indication: Urinary tract infection
     Dosage: 50 MILLIGRAM, QID
     Route: 048
     Dates: start: 20181103, end: 20181109
  34. OMEPRAZOLE [Concomitant]
     Active Substance: OMEPRAZOLE
     Indication: Product used for unknown indication
     Dosage: 40 MILLIGRAM, QD
     Route: 048
     Dates: start: 201710
  35. ONDANSETRON [Concomitant]
     Active Substance: ONDANSETRON
     Indication: Diarrhoea
     Dosage: 4 MILLIGRAM
     Route: 042
     Dates: start: 20181002, end: 20181002
  36. ONDANSETRON [Concomitant]
     Active Substance: ONDANSETRON
     Indication: Vomiting
     Dosage: UNK, UNK
  37. ONDANSETRON [Concomitant]
     Active Substance: ONDANSETRON
     Dosage: UNK, UNK
  38. ONDANSETRON [Concomitant]
     Active Substance: ONDANSETRON
  39. ONDANSETRON [Concomitant]
     Active Substance: ONDANSETRON
  40. ONDANSETRON [Concomitant]
     Active Substance: ONDANSETRON
  41. OXYCODONE [Concomitant]
     Active Substance: OXYCODONE
     Indication: Pain
     Dosage: 110 MILLIGRAM, BID
     Route: 048
  42. OXYCODONE [Concomitant]
     Active Substance: OXYCODONE
     Route: 048
  43. OXYCODONE [Concomitant]
     Active Substance: OXYCODONE
     Route: 048
  44. QUETIAPINE [Concomitant]
     Active Substance: QUETIAPINE
     Indication: Depressed mood
     Dosage: 150 MILLIGRAM, QD
     Route: 048
     Dates: start: 2020
  45. QUETIAPINE [Concomitant]
     Active Substance: QUETIAPINE
     Indication: Depressed mood
     Dosage: 100 MILLIGRAM, QD
     Route: 048
     Dates: end: 2020
  46. RAMIPRIL [Concomitant]
     Active Substance: RAMIPRIL
     Indication: Product used for unknown indication
     Dosage: 1.25 MILLIGRAM, QD
     Route: 048
  47. RAMIPRIL [Concomitant]
     Active Substance: RAMIPRIL
     Route: 048
  48. RAMIPRIL [Concomitant]
     Active Substance: RAMIPRIL
     Route: 048
  49. ALBUTEROL [Concomitant]
     Active Substance: ALBUTEROL
     Indication: Product used for unknown indication
     Dosage: 2 PUFF, AS NECESSARY
     Route: 065
  50. ALBUTEROL [Concomitant]
     Active Substance: ALBUTEROL
     Dosage: UNK
  51. ALBUTEROL [Concomitant]
     Active Substance: ALBUTEROL
     Dosage: UNK
  52. ALBUTEROL [Concomitant]
     Active Substance: ALBUTEROL
     Dosage: 2 PUFF
     Route: 065
  53. ALBUTEROL [Concomitant]
     Active Substance: ALBUTEROL
     Dosage: 2 PUFF
     Route: 065
  54. ALBUTEROL [Concomitant]
     Active Substance: ALBUTEROL
  55. SIMVASTATIN [Concomitant]
     Active Substance: SIMVASTATIN
     Indication: Product used for unknown indication
     Dosage: 40 MILLIGRAM, QD
     Route: 048
  56. SIMVASTATIN [Concomitant]
     Active Substance: SIMVASTATIN
     Route: 048
  57. SIMVASTATIN [Concomitant]
     Active Substance: SIMVASTATIN
     Route: 048
  58. SODIUM PICOSULFATE [Concomitant]
     Active Substance: SODIUM PICOSULFATE
     Indication: Constipation
     Dosage: UNK, QD
     Route: 048
  59. SODIUM PICOSULFATE [Concomitant]
     Active Substance: SODIUM PICOSULFATE
  60. SODIUM PICOSULFATE [Concomitant]
     Active Substance: SODIUM PICOSULFATE
  61. SODIUM PICOSULFATE [Concomitant]
     Active Substance: SODIUM PICOSULFATE
     Dosage: 10 OTHER
     Route: 048
  62. SODIUM PICOSULFATE [Concomitant]
     Active Substance: SODIUM PICOSULFATE
     Dosage: 10 OTHER
     Route: 048
  63. SODIUM PICOSULFATE [Concomitant]
     Active Substance: SODIUM PICOSULFATE
  64. VANCOMYCIN [Concomitant]
     Active Substance: VANCOMYCIN
     Indication: Vascular device infection
     Dosage: 1750 MILLIGRAM, QD
     Route: 042
     Dates: start: 20200612, end: 202006

REACTIONS (4)
  - Appendicitis [Recovered/Resolved]
  - Abdominal pain [Recovered/Resolved]
  - Vascular device infection [Recovered/Resolved]
  - Off label use [Unknown]

NARRATIVE: CASE EVENT DATE: 20211028
